FAERS Safety Report 10410082 (Version 1)
Quarter: 2014Q3

REPORT INFORMATION
  Report Type: Spontaneous
  Country: FR (occurrence: FR)
  Receive Date: 20140826
  Receipt Date: 20140826
  Transmission Date: 20150326
  Serious: Yes (Hospitalization)
  Sender: FDA-Public Use
  Company Number: FR-ASTRAZENECA-2014SE61535

PATIENT
  Age: 56 Year
  Sex: Male

DRUGS (3)
  1. ZOLADEX [Suspect]
     Active Substance: GOSERELIN ACETATE
     Indication: PROSTATE CANCER METASTATIC
     Route: 058
  2. CASODEX [Concomitant]
     Active Substance: BICALUTAMIDE
  3. ANTIHYPERTENSIVE DRUG [Concomitant]
     Indication: HYPERTENSION

REACTIONS (3)
  - Disease progression [Unknown]
  - Spinal cord compression [Not Recovered/Not Resolved]
  - Drug dose omission [Recovered/Resolved]

NARRATIVE: CASE EVENT DATE: 2014
